FAERS Safety Report 25939379 (Version 1)
Quarter: 2025Q4

REPORT INFORMATION
  Report Type: Spontaneous
  Country: JP (occurrence: JP)
  Receive Date: 20251020
  Receipt Date: 20251020
  Transmission Date: 20260117
  Serious: Yes (Other)
  Sender: AMGEN
  Company Number: JP-AMGEN-JPNSP2025123060

PATIENT
  Age: 68 Year

DRUGS (2)
  1. IMDELLTRA [Suspect]
     Active Substance: TARLATAMAB-DLLE
     Indication: Small cell lung cancer
     Dosage: 1 MILLIGRAM, CYCLE 1, DAY 1, DRIP INFUSION
     Route: 040
     Dates: start: 20250618
  2. IMDELLTRA [Suspect]
     Active Substance: TARLATAMAB-DLLE
     Dosage: 10 MILLIGRAM, DRIP INFUSION
     Route: 040
     Dates: start: 20250625

REACTIONS (2)
  - Metastases to bone [Unknown]
  - Pyrexia [Unknown]

NARRATIVE: CASE EVENT DATE: 20250619
